FAERS Safety Report 7042595-8 (Version None)
Quarter: 2010Q3

REPORT INFORMATION
  Report Type: 
  Country: None (occurrence: None)
  Receive Date: 20100929
  Receipt Date: 20100805
  Transmission Date: 20110219
  Serious: No
  Sender: FDA-Public Use
  Company Number: US-WYE-H16893410

PATIENT
  Age: 66 Year
  Sex: Female
  Weight: 78.54 kg

DRUGS (8)
  1. PRISTIQ [Suspect]
     Indication: ANHEDONIA
     Dosage: 50 MG 1X PER 1 DAY, ORAL
     Route: 048
     Dates: start: 20100101
  2. PROTONIX [Concomitant]
  3. METOPROLOL SUCCINATE [Concomitant]
  4. MICARDIS [Concomitant]
  5. ZOCOR [Concomitant]
  6. KLONOPIN [Concomitant]
  7. PLAVIX [Concomitant]
  8. ASPIRIN [Concomitant]

REACTIONS (4)
  - APPETITE DISORDER [None]
  - PRODUCT QUALITY ISSUE [None]
  - SOMNOLENCE [None]
  - WEIGHT INCREASED [None]
